FAERS Safety Report 7718722-3 (Version None)
Quarter: 2011Q3

REPORT INFORMATION
  Report Type: 
  Country: None (occurrence: None)
  Receive Date: 20110830
  Receipt Date: 20110815
  Transmission Date: 20111222
  Serious: Yes (Other)
  Sender: FDA-Public Use
  Company Number: GB-GLAXOSMITHKLINE-A0942589A

PATIENT
  Sex: Female

DRUGS (2)
  1. NICORETTE [Suspect]
     Indication: PRODUCT USED FOR UNKNOWN INDICATION
     Dosage: 4MG FIFTEEN TIMES PER DAY
     Route: 048
  2. NICORETTE [Suspect]
     Route: 048

REACTIONS (11)
  - ABDOMINAL PAIN [None]
  - CEREBROVASCULAR ACCIDENT [None]
  - HEADACHE [None]
  - MOUTH ULCERATION [None]
  - INCORRECT DOSE ADMINISTERED [None]
  - INCORRECT DRUG ADMINISTRATION DURATION [None]
  - HYPERTENSION [None]
  - DIZZINESS [None]
  - MALAISE [None]
  - TRANSIENT ISCHAEMIC ATTACK [None]
  - OVERDOSE [None]
